FAERS Safety Report 25816612 (Version 1)
Quarter: 2025Q3

REPORT INFORMATION
  Report Type: Spontaneous
  Country: US (occurrence: US)
  Receive Date: 20250918
  Receipt Date: 20250918
  Transmission Date: 20251021
  Serious: No
  Sender: ALEXION PHARMACEUTICALS
  Company Number: US-AstraZeneca-CH-00951657A

PATIENT
  Sex: Female

DRUGS (2)
  1. BRILINTA [Suspect]
     Active Substance: TICAGRELOR
     Route: 065
  2. BRILINTA [Suspect]
     Active Substance: TICAGRELOR

REACTIONS (4)
  - Myalgia [Unknown]
  - Dizziness [Unknown]
  - Dizziness [Unknown]
  - Hypertension [Unknown]
